FAERS Safety Report 25526584 (Version 1)
Quarter: 2025Q3

REPORT INFORMATION
  Report Type: Spontaneous
  Country: CA (occurrence: CA)
  Receive Date: 20250707
  Receipt Date: 20250707
  Transmission Date: 20251021
  Serious: Yes (Other)
  Sender: MYLAN
  Company Number: CA-MYLANLABS-2025M1055517

PATIENT
  Age: 71 Year
  Sex: Male

DRUGS (12)
  1. CELEBREX [Suspect]
     Active Substance: CELECOXIB
     Indication: Product used for unknown indication
  2. CELEBREX [Suspect]
     Active Substance: CELECOXIB
     Route: 065
  3. CELEBREX [Suspect]
     Active Substance: CELECOXIB
     Route: 065
  4. CELEBREX [Suspect]
     Active Substance: CELECOXIB
  5. RUXIENCE [Suspect]
     Active Substance: RITUXIMAB-PVVR
     Indication: Rheumatoid arthritis
  6. RUXIENCE [Suspect]
     Active Substance: RITUXIMAB-PVVR
     Route: 042
  7. RUXIENCE [Suspect]
     Active Substance: RITUXIMAB-PVVR
     Route: 042
  8. RUXIENCE [Suspect]
     Active Substance: RITUXIMAB-PVVR
  9. RUXIENCE [Suspect]
     Active Substance: RITUXIMAB-PVVR
     Indication: Rheumatoid arthritis
  10. RUXIENCE [Suspect]
     Active Substance: RITUXIMAB-PVVR
     Route: 042
  11. RUXIENCE [Suspect]
     Active Substance: RITUXIMAB-PVVR
     Route: 042
  12. RUXIENCE [Suspect]
     Active Substance: RITUXIMAB-PVVR

REACTIONS (2)
  - Condition aggravated [Not Recovered/Not Resolved]
  - Parkinson^s disease [Not Recovered/Not Resolved]
